FAERS Safety Report 21756895 (Version 1)
Quarter: 2022Q4

REPORT INFORMATION
  Report Type: Report from Study
  Country: FR (occurrence: None)
  Receive Date: 20221220
  Receipt Date: 20221220
  Transmission Date: 20230113
  Serious: Yes (Hospitalization)
  Sender: FDA-Public Use
  Company Number: 2022A406653

PATIENT
  Age: 43 Year
  Sex: Male
  Weight: 90 kg

DRUGS (8)
  1. EVUSHELD [Suspect]
     Active Substance: CILGAVIMAB\TIXAGEVIMAB
     Indication: COVID-19 prophylaxis
     Dosage: TIXAGEVIMAB 150 MG/CILGAVIMAB 150 MG ONCE/SINGLE ADMINISTRATION
     Route: 030
     Dates: start: 20220210
  2. EVUSHELD [Suspect]
     Active Substance: CILGAVIMAB\TIXAGEVIMAB
     Indication: COVID-19 prophylaxis
     Dosage: TIXAGEVIMAB 150 MG/CILGAVIMAB 150 MG ONCE/SINGLE ADMINISTRATION
     Route: 030
     Dates: start: 20221103
  3. CELLCEPT [Concomitant]
     Active Substance: MYCOPHENOLATE MOFETIL
     Indication: COVID-19
     Dosage: AT THE DOSAGE OF 500 MG IN THE MORNING AND EVENING
     Route: 065
     Dates: start: 20220619
  4. PREDNISONE [Concomitant]
     Active Substance: PREDNISONE
     Indication: COVID-19
     Route: 065
     Dates: start: 20220619
  5. AMLODIPINE BESYLATE [Concomitant]
     Active Substance: AMLODIPINE BESYLATE
     Indication: COVID-19
     Dosage: IN THE MORNING
     Route: 065
     Dates: start: 20220619
  6. VALACYCLOVIR HYDROCHLORIDE [Concomitant]
     Active Substance: VALACYCLOVIR HYDROCHLORIDE
     Indication: COVID-19
     Dosage: EVERY MORNING
     Route: 065
     Dates: start: 20220619
  7. BELATACEPT [Concomitant]
     Active Substance: BELATACEPT
  8. MYCOPHENOLATE MOFETIL [Concomitant]
     Active Substance: MYCOPHENOLATE MOFETIL

REACTIONS (1)
  - COVID-19 [Unknown]

NARRATIVE: CASE EVENT DATE: 20220615
